FAERS Safety Report 7323220-5 (Version None)
Quarter: 2011Q1

REPORT INFORMATION
  Report Type: 
  Country: None (occurrence: None)
  Receive Date: 20110216
  Receipt Date: 20110202
  Transmission Date: 20110831
  Serious: Yes (Death, Hospitalization)
  Sender: FDA-Public Use
  Company Number: UTC-005076

PATIENT
  Age: 78 Year
  Sex: Female

DRUGS (4)
  1. TRACLEER [Concomitant]
  2. COUMADIN [Concomitant]
  3. REVATIO [Concomitant]
  4. REMODULIN [Suspect]
     Indication: PULMONARY ARTERIAL HYPERTENSION
     Dosage: 91.08 UG/KG (0.06325 UG/KG,1 IN 1 MIN),SUBCUTANEOUS
     Route: 058
     Dates: start: 20100209

REACTIONS (1)
  - DEATH [None]
